FAERS Safety Report 8564227-X (Version None)
Quarter: 2012Q3

REPORT INFORMATION
  Report Type: 
  Country: None (occurrence: None)
  Receive Date: 20120803
  Receipt Date: 20120724
  Transmission Date: 20120928
  Serious: Yes (Other)
  Sender: FDA-Public Use
  Company Number: AU-JNJFOC-20120712579

PATIENT
  Age: 33 Year
  Sex: Male

DRUGS (4)
  1. RISPERIDONE [Suspect]
     Indication: AUTISM SPECTRUM DISORDER
     Route: 065
  2. RISPERIDONE [Suspect]
     Indication: SCHIZOPHRENIA
     Route: 065
  3. QUETIAPINE [Suspect]
     Indication: SCHIZOPHRENIA
     Route: 065
  4. QUETIAPINE [Suspect]
     Indication: AUTISM SPECTRUM DISORDER
     Route: 065

REACTIONS (2)
  - HOMICIDE [None]
  - AGGRESSION [None]
